FAERS Safety Report 14921453 (Version 1)
Quarter: 2018Q2

REPORT INFORMATION
  Report Type: Other
  Country: IT (occurrence: IT)
  Receive Date: 20180522
  Receipt Date: 20180522
  Transmission Date: 20180711
  Serious: No
  Sender: FDA-Public Use
  Company Number: IT-DEXPHARM-20180340

PATIENT
  Age: 48 Year
  Sex: Female

DRUGS (3)
  1. LEVETIRACETAM. [Suspect]
     Active Substance: LEVETIRACETAM
  2. PHENOBARBITAL. [Concomitant]
     Active Substance: PHENOBARBITAL
  3. LEVETIRACETAM. [Suspect]
     Active Substance: LEVETIRACETAM
     Dosage: UP TO 1000 MG WITHIN 2 DAYS
     Route: 017

REACTIONS (1)
  - Rhabdomyolysis [Recovered/Resolved]
